FAERS Safety Report 8263794-3 (Version None)
Quarter: 2012Q2

REPORT INFORMATION
  Report Type: 
  Country: None (occurrence: None)
  Receive Date: 20120405
  Receipt Date: 20120326
  Transmission Date: 20120825
  Serious: Yes (Hospitalization)
  Sender: FDA-Public Use
  Company Number: AU-ABBOTT-12P-008-0918723-00

PATIENT
  Sex: Male

DRUGS (10)
  1. HUMIRA [Suspect]
     Route: 058
     Dates: start: 20090101, end: 20090101
  2. HUMIRA [Suspect]
     Indication: CROHN'S DISEASE
     Route: 058
     Dates: start: 20090622, end: 20090622
  3. METHOTREXATE [Concomitant]
     Dates: start: 20100407, end: 20100615
  4. METHOTREXATE [Concomitant]
     Dosage: 20 MG WEEKLY
     Dates: start: 20091116, end: 20091202
  5. METHOTREXATE [Concomitant]
     Dates: start: 20100316, end: 20100406
  6. METHOTREXATE [Concomitant]
     Dates: start: 20100728
  7. METHOTREXATE [Concomitant]
     Indication: CROHN'S DISEASE
     Dosage: 25 MG WEEKLY
     Dates: start: 20090923, end: 20091116
  8. VEDOLIZUMAB/PLACEBO [Concomitant]
     Indication: CROHN'S DISEASE
     Dosage: 300 MG FORTNIGHTLY
     Dates: start: 20091224, end: 20100119
  9. METHOTREXATE [Concomitant]
     Dates: start: 20100616, end: 20100727
  10. HUMIRA [Suspect]
     Route: 058
     Dates: end: 20090910

REACTIONS (1)
  - CROHN'S DISEASE [None]
